FAERS Safety Report 6412983-9 (Version None)
Quarter: 2009Q4

REPORT INFORMATION
  Report Type: 
  Country: None (occurrence: None)
  Receive Date: 20091023
  Receipt Date: 20091016
  Transmission Date: 20100525
  Serious: Yes (Hospitalization)
  Sender: FDA-Public Use
  Company Number: PHHO2009DE11947

PATIENT
  Sex: Female
  Weight: 49 kg

DRUGS (3)
  1. RAD 666 RAD+TAB [Suspect]
     Indication: RENAL TRANSPLANT
     Dosage: 0.75MG/2-0-2
     Route: 048
     Dates: start: 20090721, end: 20090921
  2. PROGRAF [Concomitant]
     Indication: RENAL TRANSPLANT
  3. MYFORTIC [Concomitant]
     Indication: RENAL TRANSPLANT

REACTIONS (2)
  - DRUG INEFFECTIVE [None]
  - KIDNEY TRANSPLANT REJECTION [None]
